FAERS Safety Report 8094732-4 (Version None)
Quarter: 2012Q1

REPORT INFORMATION
  Report Type: 
  Country: None (occurrence: None)
  Receive Date: 20120129
  Receipt Date: 20111209
  Transmission Date: 20120608
  Serious: No
  Sender: FDA-Public Use
  Company Number: US-ABBOTT-11P-163-0882321-00

PATIENT
  Sex: Female

DRUGS (2)
  1. HUMIRA [Suspect]
     Indication: CROHN'S DISEASE
     Dosage: LOADING DOSE; 160 MG X 1 DOSE
     Route: 058
     Dates: start: 20111130
  2. HUMIRA [Suspect]
     Dosage: 2 PENS, DAY 15

REACTIONS (2)
  - CONTUSION [None]
  - EYE SWELLING [None]
